FAERS Safety Report 5334088-0 (Version None)
Quarter: 2007Q2

REPORT INFORMATION
  Report Type: 
  Country: None (occurrence: None)
  Receive Date: 20070524
  Receipt Date: 20070518
  Transmission Date: 20071010
  Serious: Yes (Death)
  Sender: FDA-Public Use
  Company Number: US-MERCK-0704USA05791

PATIENT
  Age: 21 Year
  Sex: Female

DRUGS (2)
  1. CANCIDAS [Suspect]
     Indication: LUNG NEOPLASM
     Route: 065
  2. AMPHOTERICIN B AND CHOLESTEROL AND DISTEAROYLPHOSPHATIDYLGLYCEROL AND [Concomitant]
     Indication: LUNG NEOPLASM
     Route: 065

REACTIONS (3)
  - ACUTE MYELOID LEUKAEMIA [None]
  - DRUG INEFFECTIVE [None]
  - INFECTION [None]
